FAERS Safety Report 9294286 (Version 1)
Quarter: 2013Q2

REPORT INFORMATION
  Report Type: Spontaneous
  Country: US (occurrence: US)
  Receive Date: 20130516
  Receipt Date: 20130516
  Transmission Date: 20140414
  Serious: No
  Sender: FDA-Public Use
  Company Number: US-BANPHARM-20131204

PATIENT
  Age: 21 Year
  Sex: Male
  Weight: 72.57 kg

DRUGS (1)
  1. IBUPROFEN CAPSULES 200 MG [Suspect]
     Indication: PYREXIA
     Dosage: 1 DF BID (1ST DAY); 2 DF IN AM;
     Route: 048

REACTIONS (3)
  - Local swelling [Recovered/Resolved]
  - Bloody discharge [Recovered/Resolved]
  - Purulent discharge [Recovered/Resolved]
